FAERS Safety Report 7801942-7 (Version None)
Quarter: 2011Q4

REPORT INFORMATION
  Report Type: 
  Country: None (occurrence: None)
  Receive Date: 20111007
  Receipt Date: 20111007
  Transmission Date: 20120403
  Serious: No
  Sender: FDA-Public Use
  Company Number: None

PATIENT
  Sex: Male

DRUGS (1)
  1. FLUOROURACIL [Suspect]
     Dosage: 3400MG INFUSED OVER 5 DAYS
     Route: 041
     Dates: start: 20110818, end: 20110823

REACTIONS (2)
  - MUCOSAL INFLAMMATION [None]
  - STOMATITIS [None]
